FAERS Safety Report 8809011 (Version 2)
Quarter: 2012Q4

REPORT INFORMATION
  Report Type: Report from Study
  Country: JP (occurrence: JP)
  Receive Date: 20120926
  Receipt Date: 20121127
  Transmission Date: 20130627
  Serious: Yes (Death, Hospitalization)
  Sender: FDA-Public Use
  Company Number: JP-CELGENEUS-087-50794-12071459

PATIENT
  Age: 82 Year
  Sex: Male
  Weight: 56 kg

DRUGS (17)
  1. VIDAZA [Suspect]
     Indication: MDS
     Dosage: 60 milligram/sq. meter
     Route: 041
     Dates: start: 20110922, end: 20110928
  2. VIDAZA [Suspect]
     Dosage: 60 milligram/sq. meter
     Route: 041
     Dates: start: 20111104, end: 20111108
  3. VIDAZA [Suspect]
     Dosage: 60 milligram/sq. meter
     Route: 041
     Dates: start: 20111220, end: 20111224
  4. VIDAZA [Suspect]
     Dosage: 60 milligram/sq. meter
     Route: 041
     Dates: start: 20120124, end: 20120128
  5. VIDAZA [Suspect]
     Dosage: 60 milligram/sq. meter
     Route: 041
     Dates: start: 20120228, end: 20120228
  6. ECARD [Concomitant]
     Indication: DRUG USE FOR UNKNOWN INDICATION
     Route: 065
  7. AMLODIPINE OD [Concomitant]
     Indication: DRUG USE FOR UNKNOWN INDICATION
     Route: 065
  8. AMARYL [Concomitant]
     Indication: DRUG USE FOR UNKNOWN INDICATION
     Route: 065
     Dates: start: 20101227
  9. BAKTAR [Concomitant]
     Indication: DRUG USE FOR UNKNOWN INDICATION
     Route: 065
     Dates: start: 20101229
  10. FLUCONAZOLE [Concomitant]
     Indication: DRUG USE FOR UNKNOWN INDICATION
     Route: 065
     Dates: start: 20101229
  11. ALLOZYM [Concomitant]
     Indication: DRUG USE FOR UNKNOWN INDICATION
     Route: 065
     Dates: start: 20101229
  12. MAGNESIUM OXIDE [Concomitant]
     Indication: DRUG USE FOR UNKNOWN INDICATION
     Route: 065
  13. PURSENNID [Concomitant]
     Indication: DRUG USE FOR UNKNOWN INDICATION
     Route: 065
  14. ROHYPNOL [Concomitant]
     Indication: DRUG USE FOR UNKNOWN INDICATION
     Route: 065
  15. LENDORMIN [Concomitant]
     Indication: DRUG USE FOR UNKNOWN INDICATION
     Route: 065
  16. DIFLUCAN [Concomitant]
     Indication: DRUG USE FOR UNKNOWN INDICATION
     Route: 065
  17. ZYLORIC [Concomitant]
     Indication: DRUG USE FOR UNKNOWN INDICATION
     Route: 065

REACTIONS (2)
  - Cerebral haemorrhage [Fatal]
  - Sepsis [Recovered/Resolved]
